FAERS Safety Report 16807522 (Version 4)
Quarter: 2020Q3

REPORT INFORMATION
  Report Type: Other
  Country: GB (occurrence: GB)
  Receive Date: 20190914
  Receipt Date: 20200921
  Transmission Date: 20201102
  Serious: Yes (Hospitalization)
  Sender: FDA-Public Use
  Company Number: GB-ROCHE-2076221

PATIENT
  Sex: Male

DRUGS (1)
  1. ROACTEMRA [Suspect]
     Active Substance: TOCILIZUMAB
     Indication: RHEUMATOID ARTHRITIS
     Route: 058
     Dates: start: 20150303

REACTIONS (13)
  - Localised infection [Unknown]
  - Infection [Unknown]
  - Gait disturbance [Unknown]
  - Negative thoughts [Unknown]
  - Malaise [Unknown]
  - Wheelchair user [Unknown]
  - Pain [Unknown]
  - Skin ulcer [Unknown]
  - Asthenia [Unknown]
  - Cerebrovascular accident [Unknown]
  - Infected skin ulcer [Unknown]
  - Memory impairment [Unknown]
  - Urinary tract infection [Unknown]
